FAERS Safety Report 8664681 (Version 3)
Quarter: 2013Q4

REPORT INFORMATION
  Report Type: Spontaneous
  Country: JP (occurrence: JP)
  Receive Date: 20120713
  Receipt Date: 20131031
  Transmission Date: 20140711
  Serious: Yes (Hospitalization, Other)
  Sender: FDA-Public Use
  Company Number: JP-009507513-1207JPN003650

PATIENT
  Age: 79 Year
  Sex: Male

DRUGS (7)
  1. MENESIT TABLETS - 250 [Suspect]
     Indication: PARKINSON^S DISEASE
     Dosage: DAILY DOSAGE UNKNOWN
     Route: 048
  2. DOPS [Suspect]
     Dosage: 200 MG, TID
     Route: 048
  3. FLORINEF [Suspect]
     Dosage: 0.1 MG, QD
     Route: 048
  4. NAUZELIN [Suspect]
     Dosage: 10 MG, TID
     Route: 048
  5. METLIGINE [Concomitant]
     Dosage: 2 MG, TID
     Route: 048
  6. FUROSEMIDE [Concomitant]
     Dosage: DIVIDED DOSE FREQUENCY UNKNOWN
     Route: 048
  7. FP (SELEGILINE HYDROCHLORIDE) [Concomitant]
     Dosage: 2.5 MG, BID
     Route: 048

REACTIONS (4)
  - Femur fracture [Recovered/Resolved]
  - Platelet count decreased [Unknown]
  - Haematuria [Unknown]
  - Orthostatic hypotension [Unknown]
